FAERS Safety Report 9958825 (Version 3)
Quarter: 2014Q1

REPORT INFORMATION
  Report Type: Spontaneous
  Country: JP (occurrence: JP)
  Receive Date: 20140305
  Receipt Date: 20140327
  Transmission Date: 20141002
  Serious: Yes (Death)
  Sender: FDA-Public Use
  Company Number: JP-BAYER-2014-032748

PATIENT
  Age: 27 Year
  Sex: Female
  Weight: 40 kg

DRUGS (14)
  1. YAZ [Suspect]
     Indication: DYSMENORRHOEA
     Dosage: DAILY DOSE 1 DF
     Route: 048
     Dates: start: 20110328, end: 201403
  2. YAZ [Suspect]
     Indication: PREMENSTRUAL SYNDROME
  3. ZYPREXA [Concomitant]
     Indication: BIPOLAR I DISORDER
     Dosage: UNK
  4. LEVOTOMIN [Concomitant]
     Indication: BIPOLAR I DISORDER
     Dosage: UNK
  5. TASMOLIN [Concomitant]
     Indication: BIPOLAR I DISORDER
     Dosage: UNK
  6. SILECE [Concomitant]
     Indication: BIPOLAR I DISORDER
     Dosage: UNK
  7. NITRAZEPAM [Concomitant]
     Indication: BIPOLAR I DISORDER
     Dosage: UNK
     Route: 048
  8. DIAZEPAM [Concomitant]
     Indication: BIPOLAR I DISORDER
     Dosage: UNK
  9. GOODMIN [Concomitant]
     Indication: BIPOLAR I DISORDER
     Dosage: UNK
     Route: 048
  10. GASCON [Concomitant]
     Indication: BIPOLAR I DISORDER
     Dosage: UNK
     Route: 048
  11. CLARITHROMYCIN [Concomitant]
     Indication: CHRONIC SINUSITIS
     Dosage: UNK
     Route: 048
  12. AMBROXOL HYDROCHLORIDE [Concomitant]
     Indication: CHRONIC SINUSITIS
     Dosage: UNK
     Route: 048
  13. ALLEGRA [Concomitant]
     Indication: CHRONIC SINUSITIS
     Dosage: UNK
     Route: 048
  14. REBAMIPIDE [Concomitant]
     Indication: CHRONIC SINUSITIS
     Dosage: UNK

REACTIONS (7)
  - Arteriosclerosis coronary artery [Fatal]
  - Acute myocardial infarction [Fatal]
  - Cardiac arrest [Fatal]
  - Cyanosis [Fatal]
  - Dyspnoea [Fatal]
  - Loss of consciousness [Fatal]
  - Myocardial infarction [Fatal]
